FAERS Safety Report 5015046-2 (Version None)
Quarter: 2006Q2

REPORT INFORMATION
  Report Type: 
  Country: None (occurrence: None)
  Receive Date: 20060426
  Receipt Date: 20060204
  Transmission Date: 20061013
  Serious: No
  Sender: FDA-Public Use
  Company Number: 213320

PATIENT
  Age: 17 Year
  Sex: Female

DRUGS (6)
  1. XOLAIR [Suspect]
     Indication: ASTHMA
     Dosage: 150 MG, Q4W
     Dates: start: 20040427, end: 20050224
  2. ADVAIR DISKUS 100/50 [Concomitant]
  3. ALBUTEROL NEBULIZER (ALBUTEROL/ALBUTEROL SULFATE) [Concomitant]
  4. SINGULAIR [Concomitant]
  5. PREDNISONE TAB [Concomitant]
  6. XOPENEX [Concomitant]

REACTIONS (1)
  - DRUG EXPOSURE DURING PREGNANCY [None]
